FAERS Safety Report 25053962 (Version 1)
Quarter: 2025Q1

REPORT INFORMATION
  Report Type: Spontaneous
  Country: US (occurrence: US)
  Receive Date: 20250307
  Receipt Date: 20250307
  Transmission Date: 20250409
  Serious: No
  Sender: SANOFI AVENTIS
  Company Number: US-SA-2025SA066596

PATIENT
  Sex: Male

DRUGS (2)
  1. DUPIXENT [Suspect]
     Active Substance: DUPILUMAB
     Indication: Eosinophilic oesophagitis
     Dosage: 300.000MG QW
     Route: 058
     Dates: start: 202411
  2. VOQUEZNA [Concomitant]
     Active Substance: VONOPRAZAN FUMARATE

REACTIONS (3)
  - Taste disorder [Unknown]
  - Dysgeusia [Unknown]
  - Glossitis [Unknown]
